FAERS Safety Report 22171303 (Version 1)
Quarter: 2023Q2

REPORT INFORMATION
  Report Type: Spontaneous
  Country: GB (occurrence: GB)
  Receive Date: 20230404
  Receipt Date: 20230404
  Transmission Date: 20230721
  Serious: Yes (Other)
  Sender: FDA-Public Use
  Company Number: GB-MHRA-MED-202302201239070810-ZLCHD

PATIENT
  Sex: Male

DRUGS (1)
  1. PERINDOPRIL [Suspect]
     Active Substance: PERINDOPRIL
     Indication: Product used for unknown indication
     Dosage: 56 X 8MG TABLETS WERE DISPENSED IN ERROR, THE PATIENT TOOK 38 TABLETS
     Route: 065

REACTIONS (3)
  - Wheezing [Recovered/Resolved]
  - Product dispensing error [Unknown]
  - Medication error [Unknown]
